FAERS Safety Report 9762228 (Version 1)
Quarter: 2013Q4

REPORT INFORMATION
  Report Type: Spontaneous
  Country: US (occurrence: US)
  Receive Date: 20131216
  Receipt Date: 20131216
  Transmission Date: 20140711
  Serious: No
  Sender: FDA-Public Use
  Company Number: US-BIOGENIDEC-2013BI104310

PATIENT
  Sex: Female

DRUGS (16)
  1. TECFIDERA [Suspect]
     Indication: MULTIPLE SCLEROSIS
     Route: 048
     Dates: start: 20130919
  2. ACETAMINOPHEN [Concomitant]
  3. AMANTADINE HCL [Concomitant]
  4. ASPIRIN [Concomitant]
  5. BENEFIBER [Concomitant]
  6. CALCIUM [Concomitant]
  7. DETROL LA [Concomitant]
  8. EFFEXOR XR [Concomitant]
  9. FOLIC ACID [Concomitant]
  10. GABAPENTIN [Concomitant]
  11. IRON [Concomitant]
  12. MAGNESIUM [Concomitant]
  13. MIRALAX [Concomitant]
  14. MOTRIN IB [Concomitant]
  15. PANTOPRAZOLE SODIUM [Concomitant]
  16. SUPER B COMPLEX [Concomitant]

REACTIONS (1)
  - Fatigue [Unknown]
